FAERS Safety Report 14395521 (Version 3)
Quarter: 2019Q2

REPORT INFORMATION
  Report Type: Spontaneous
  Country: CA (occurrence: CA)
  Receive Date: 20180116
  Receipt Date: 20190529
  Transmission Date: 20190711
  Serious: Yes (Other)
  Sender: FDA-Public Use
  Company Number: CA-OTSUKA-2018_000224

PATIENT
  Age: 22 Year
  Sex: Female

DRUGS (4)
  1. ABILIFY [Suspect]
     Active Substance: ARIPIPRAZOLE
     Indication: PRODUCT USED FOR UNKNOWN INDICATION
     Dosage: 20, UNK
     Route: 065
  2. ZIPRASIDONE HYDROCHLORIDE. [Suspect]
     Active Substance: ZIPRASIDONE HYDROCHLORIDE
     Indication: PRODUCT USED FOR UNKNOWN INDICATION
     Dosage: UNK
     Route: 065
  3. ZYPREXA [Suspect]
     Active Substance: OLANZAPINE
     Indication: PRODUCT USED FOR UNKNOWN INDICATION
     Dosage: UNK
     Route: 065
  4. QUETIAPINE FUMARATE. [Suspect]
     Active Substance: QUETIAPINE FUMARATE
     Indication: PRODUCT USED FOR UNKNOWN INDICATION
     Dosage: UNK
     Route: 065

REACTIONS (9)
  - Symptom recurrence [Unknown]
  - Extrapyramidal disorder [Unknown]
  - Sedation [Unknown]
  - Blood prolactin abnormal [Unknown]
  - Insurance issue [Unknown]
  - Orthostatic hypertension [Unknown]
  - Sexual dysfunction [Unknown]
  - Diabetes mellitus [Unknown]
  - Cardiometabolic syndrome [Unknown]
